FAERS Safety Report 17057289 (Version 1)
Quarter: 2019Q4

REPORT INFORMATION
  Report Type: Spontaneous
  Country: FI (occurrence: FI)
  Receive Date: 20191121
  Receipt Date: 20191121
  Transmission Date: 20200122
  Serious: Yes (Life-Threatening)
  Sender: FDA-Public Use
  Company Number: FI-ACCORD-161533

PATIENT
  Age: 48 Year
  Sex: Female

DRUGS (15)
  1. PANADOL FORTE [Concomitant]
     Dates: start: 20170922
  2. OXYNORM [Concomitant]
     Active Substance: OXYCODONE HYDROCHLORIDE
     Dosage: ,AS NECESSARY
     Dates: start: 20190823
  3. GRANISETRON STADA [Concomitant]
     Dosage: AS NECESSARY
     Dates: start: 20190320
  4. AMLODIPIN ORION [Concomitant]
     Dosage: 10,MG,DAILY
     Dates: start: 20190513
  5. OPAMOX [Concomitant]
     Active Substance: OXAZEPAM
     Dosage: ,,AS NECESSARY
     Dates: start: 20190925
  6. DEXAMETHASONE. [Concomitant]
     Active Substance: DEXAMETHASONE
     Dosage: ,AS NECESSARY
     Dates: start: 20190320
  7. FENTANYL. [Concomitant]
     Active Substance: FENTANYL
     Dates: start: 20190905
  8. CANDESARTAN ACTAVIS [Concomitant]
     Active Substance: CANDESARTAN
     Dosage: 8,MG,DAILY
     Dates: start: 20190905
  9. CAPECITABINE ORION [Concomitant]
     Dates: start: 20190911
  10. PEGORION [Concomitant]
     Active Substance: POLYETHYLENE GLYCOL 4000
     Dosage: ,,AS NECESSARY, POWDER FOR ORAL SOLUTION IN SINGLE-DOSE CONTAINER
     Dates: start: 20190311
  11. OXALIPLATIN. [Suspect]
     Active Substance: OXALIPLATIN
     Indication: NEOPLASM MALIGNANT
     Dosage: 190,MG,X1
     Route: 042
     Dates: start: 20191015, end: 20191015
  12. ABSTRAL [Concomitant]
     Active Substance: FENTANYL CITRATE
     Dosage: 900 UG,AS NECESSARY
     Dates: start: 20190925
  13. XYLOCAINE [Concomitant]
     Active Substance: LIDOCAINE HYDROCHLORIDE
     Dates: start: 20190923
  14. VI-SIBLIN [Concomitant]
     Active Substance: HERBALS\PLANTAGO OVATA LEAF
     Dosage: ,,AS NECESSARY
     Dates: start: 20190304
  15. PRIMPERAN [Concomitant]
     Active Substance: METOCLOPRAMIDE HYDROCHLORIDE
     Dosage: ,AS NECESSARY
     Dates: start: 20190320

REACTIONS (5)
  - Hyperhidrosis [Recovered/Resolved]
  - Blood pressure decreased [Recovered/Resolved]
  - Palpitations [Recovered/Resolved]
  - Chest discomfort [Recovered/Resolved]
  - Erythema [Recovered/Resolved]

NARRATIVE: CASE EVENT DATE: 20191015
